FAERS Safety Report 9966149 (Version 1)
Quarter: 2014Q1

REPORT INFORMATION
  Report Type: Report from Study
  Country: US (occurrence: US)
  Receive Date: 20140305
  Receipt Date: 20140305
  Transmission Date: 20141002
  Serious: No
  Sender: FDA-Public Use
  Company Number: US-ABBVIE-13P-163-1121906-00

PATIENT
  Age: 48 Year
  Sex: Female

DRUGS (5)
  1. HUMIRA [Suspect]
     Indication: PSORIASIS
     Dates: start: 20130606
  2. NEORAL [Suspect]
     Indication: PSORIASIS
  3. NEORAL [Suspect]
  4. NEORAL [Suspect]
  5. HYDROXYZINE [Concomitant]
     Indication: PRURITUS
     Dosage: AT BEDTIME

REACTIONS (2)
  - Swelling face [Not Recovered/Not Resolved]
  - Psoriasis [Not Recovered/Not Resolved]
